FAERS Safety Report 8534411-X (Version None)
Quarter: 2012Q3

REPORT INFORMATION
  Report Type: 
  Country: None (occurrence: None)
  Receive Date: 20120724
  Receipt Date: 20120720
  Transmission Date: 20120928
  Serious: Yes (Other)
  Sender: FDA-Public Use
  Company Number: GXKR2012DE002348

PATIENT
  Sex: Male

DRUGS (1)
  1. DOXEPIN [Suspect]
     Indication: DEPRESSION
     Dosage: 75 MG - 100 MG DAILY
     Route: 048
     Dates: start: 20020101

REACTIONS (1)
  - LUMBAR VERTEBRAL FRACTURE [None]
